FAERS Safety Report 9255477 (Version 1)
Quarter: 2013Q2

REPORT INFORMATION
  Report Type: Spontaneous
  Country: GB (occurrence: None)
  Receive Date: 20130422
  Receipt Date: 20130422
  Transmission Date: 20140414
  Serious: Yes (Other)
  Sender: FDA-Public Use
  Company Number: GER/UKI/13/0029114

PATIENT
  Age: 61 Year
  Sex: Female
  Weight: 63.5 kg

DRUGS (3)
  1. SERTRALINE (SERTRALINE) (SERTRALINE) [Suspect]
     Indication: DEPRESSION
     Dosage: 1 IN 1 D
     Dates: start: 20130327, end: 20130328
  2. AMITRIPTYLINE (AMITRIPTYLINE) [Suspect]
     Indication: PAIN
  3. ZOLPIDEM (ZOLPIDEM) [Suspect]
     Indication: INSOMNIA

REACTIONS (13)
  - Gait disturbance [None]
  - Insomnia [None]
  - Drooling [None]
  - Fatigue [None]
  - Headache [None]
  - Malaise [None]
  - Movement disorder [None]
  - Nausea [None]
  - Neck pain [None]
  - Pain in extremity [None]
  - Syncope [None]
  - Gait disturbance [None]
  - Insomnia [None]
